FAERS Safety Report 10997671 (Version 1)
Quarter: 2015Q2

REPORT INFORMATION
  Report Type: Spontaneous
  Country: US (occurrence: US)
  Receive Date: 20150408
  Receipt Date: 20150408
  Transmission Date: 20150821
  Serious: No
  Sender: FDA-Public Use
  Company Number: US-BANPHARM-20143026

PATIENT
  Age: 51 Year
  Sex: Male
  Weight: 111.13 kg

DRUGS (3)
  1. BLOOD PRESSURE PILL [Concomitant]
  2. ALEVE [Suspect]
     Active Substance: NAPROXEN SODIUM
     Indication: PAIN
     Dosage: ONCE DAILY,
     Route: 048
     Dates: start: 201408
  3. ALEVE [Suspect]
     Active Substance: NAPROXEN SODIUM
     Indication: PAIN
     Dosage: ONCE DAILY,
     Route: 048
     Dates: start: 201405, end: 201408

REACTIONS (3)
  - Foreign body [Recovered/Resolved]
  - Incorrect drug administration duration [Unknown]
  - Product size issue [Unknown]

NARRATIVE: CASE EVENT DATE: 201405
